FAERS Safety Report 24915104 (Version 1)
Quarter: 2025Q1

REPORT INFORMATION
  Report Type: Other
  Country: ES (occurrence: ES)
  Receive Date: 20250203
  Receipt Date: 20250203
  Transmission Date: 20250409
  Serious: Yes (Hospitalization, Other)
  Sender: ANI
  Company Number: 2021-ES-000154

PATIENT
  Age: 32 Year
  Sex: Female

DRUGS (1)
  1. RANITIDINE HYDROCHLORIDE [Suspect]
     Active Substance: RANITIDINE HYDROCHLORIDE
     Indication: Gastrooesophageal reflux disease
     Route: 042
     Dates: start: 202008

REACTIONS (4)
  - Anaphylactic reaction [Unknown]
  - Kounis syndrome [Unknown]
  - Adrenergic syndrome [Unknown]
  - Stress cardiomyopathy [Unknown]
